FAERS Safety Report 6038737-3 (Version None)
Quarter: 2009Q1

REPORT INFORMATION
  Report Type: 
  Country: None (occurrence: None)
  Receive Date: 20090115
  Receipt Date: 20081208
  Transmission Date: 20090719
  Serious: No
  Sender: FDA-Public Use
  Company Number: US-BAYER-200814810BCC

PATIENT
  Age: 81 Year
  Sex: Male
  Weight: 100 kg

DRUGS (7)
  1. ALEVE (CAPLET) [Suspect]
     Indication: INFLAMMATION
     Dosage: TOTAL DAILY DOSE: 880 MG  UNIT DOSE: 220 MG
     Dates: start: 20080101
  2. COUMADIN [Concomitant]
  3. CARTIA XT [Concomitant]
  4. CLONIDINE [Concomitant]
  5. PROCAINAMIDE [Concomitant]
  6. POTASSIUM CHLORIDE [Concomitant]
  7. PRILOSEC [Concomitant]

REACTIONS (2)
  - JOINT SWELLING [None]
  - OEDEMA PERIPHERAL [None]
